FAERS Safety Report 13184942 (Version 1)
Quarter: 2017Q1

REPORT INFORMATION
  Report Type: Spontaneous
  Country: GB (occurrence: GB)
  Receive Date: 20170203
  Receipt Date: 20170203
  Transmission Date: 20170428
  Serious: Yes (Life-Threatening, Hospitalization)
  Sender: FDA-Public Use
  Company Number: GB-ASTRAZENECA-2017SE10014

PATIENT
  Age: 8 Year
  Sex: Male
  Weight: 28.8 kg

DRUGS (17)
  1. PYRIDOXINE [Concomitant]
     Active Substance: PYRIDOXINE
  2. SODIUM CHLORIDE INJECTION 0.9% [Concomitant]
  3. MEROPENEM. [Suspect]
     Active Substance: MEROPENEM
     Indication: TUBERCULOSIS
     Route: 042
     Dates: start: 20161123, end: 20161227
  4. POTASSIUM CHLORIDE. [Concomitant]
     Active Substance: POTASSIUM CHLORIDE
  5. CLOFAZIMINE [Concomitant]
     Active Substance: CLOFAZIMINE
  6. CYCLIZINE [Concomitant]
     Active Substance: CYCLIZINE
  7. HYDROCORTISONE. [Concomitant]
     Active Substance: HYDROCORTISONE
  8. HEPARINISED SALINE [Concomitant]
     Active Substance: HEPARIN SODIUM
  9. CO-AMOXICLAV [Concomitant]
     Active Substance: AMOXICILLIN\CLAVULANIC ACID
  10. MAGNESIUM GLYCEROPHOSPHATE [Concomitant]
     Active Substance: MAGNESIUM GLYCEROPHOSPHATE
  11. WATER FOR INJECTION [Concomitant]
     Active Substance: WATER
  12. CYCLOSERINE. [Concomitant]
     Active Substance: CYCLOSERINE
  13. PROTHIONAMIDE [Concomitant]
     Active Substance: PROTIONAMIDE
  14. TEICOPLANIN [Suspect]
     Active Substance: TEICOPLANIN
     Indication: DEVICE RELATED SEPSIS
     Route: 042
     Dates: start: 20161225, end: 20161227
  15. DERMOL [Concomitant]
     Active Substance: BENZALKONIUM CHLORIDE\CHLORHEXIDINE HYDROCHLORIDE\ISOPROPYL MYRISTATE\PARAFFIN
  16. PYRAZINAMIDE. [Concomitant]
     Active Substance: PYRAZINAMIDE
  17. DELAMANID [Concomitant]
     Active Substance: DELAMANID

REACTIONS (7)
  - Pyrexia [Recovered/Resolved]
  - Nausea [Unknown]
  - Eosinophil count increased [Unknown]
  - Device related sepsis [Unknown]
  - Drug reaction with eosinophilia and systemic symptoms [Unknown]
  - Rash [Recovered/Resolved]
  - Vomiting [Unknown]

NARRATIVE: CASE EVENT DATE: 20161226
